FAERS Safety Report 21215438 (Version 1)
Quarter: 2022Q3

REPORT INFORMATION
  Report Type: Spontaneous
  Country: US (occurrence: US)
  Receive Date: 20220816
  Receipt Date: 20220816
  Transmission Date: 20221026
  Serious: Yes (Other)
  Sender: FDA-Public Use
  Company Number: US-SA-SAC20220812001004

PATIENT
  Sex: Female

DRUGS (1)
  1. CERDELGA [Suspect]
     Active Substance: ELIGLUSTAT
     Indication: Gaucher^s disease
     Dosage: 84MG, BID
     Route: 048
     Dates: start: 20220414

REACTIONS (4)
  - Loss of consciousness [Unknown]
  - COVID-19 [Unknown]
  - Malaise [Unknown]
  - Dehydration [Unknown]
